FAERS Safety Report 7750142 (Version 4)
Quarter: 2013Q3

REPORT INFORMATION
  Report Type: Report from Study
  Country: BR (occurrence: BR)
  Receive Date: 20110106
  Receipt Date: 20130717
  Transmission Date: 20140515
  Serious: Yes (Hospitalization)
  Sender: FDA-Public Use
  Company Number: BR-BRISTOL-MYERS SQUIBB COMPANY-15471139

PATIENT
  Age: 53 Year
  Sex: Female
  Weight: 56 kg

DRUGS (7)
  1. CISPLATIN [Suspect]
     Indication: NON-SMALL CELL LUNG CANCER
     Dosage: ON DAY 1 TO 8?LAST DOSE PRIOR TO EVENT 7DEC10
     Route: 042
     Dates: start: 20101103
  2. ETOPOSIDE [Suspect]
     Indication: NON-SMALL CELL LUNG CANCER
     Dosage: ON DAY 1 TO 5 ?LAST DOSE PRIOR TO EVENT 4DEC10
     Route: 042
     Dates: start: 20101103
  3. OMEPRAZOLE [Concomitant]
     Dates: start: 20101210
  4. ALUMINIUM HYDROXIDE [Concomitant]
     Dates: start: 20101122
  5. METOCLOPRAMIDE [Concomitant]
     Dates: start: 20101103
  6. DEXAMETHASONE [Concomitant]
     Dates: start: 20101103
  7. PARACETAMOL [Concomitant]
     Dates: start: 20101109

REACTIONS (2)
  - Dehydration [Recovered/Resolved]
  - Oesophagitis [Recovered/Resolved]
